FAERS Safety Report 7048888-2 (Version None)
Quarter: 2010Q4

REPORT INFORMATION
  Report Type: 
  Country: None (occurrence: None)
  Receive Date: 20101018
  Receipt Date: 20101005
  Transmission Date: 20110411
  Serious: Yes (Hospitalization)
  Sender: FDA-Public Use
  Company Number: US-ELI_LILLY_AND_COMPANY-US200809004930

PATIENT
  Age: 75 Year
  Sex: Female

DRUGS (5)
  1. FORTEO [Suspect]
     Indication: OSTEOPOROSIS
     Dosage: 20 UG, DAILY (1/D)
     Route: 065
     Dates: start: 20080401, end: 20081001
  2. DILACOR XR [Concomitant]
  3. CALCIUM WITH VITAMIN D [Concomitant]
  4. SIMVASTATIN [Concomitant]
     Dosage: 40 MG, UNKNOWN
     Route: 065
  5. VIVOL [Concomitant]
     Dosage: UNK, UNKNOWN
     Route: 065

REACTIONS (3)
  - ATRIAL FIBRILLATION [None]
  - ATRIAL FLUTTER [None]
  - MUSCLE SPASMS [None]
